FAERS Safety Report 18350350 (Version 3)
Quarter: 2020Q4

REPORT INFORMATION
  Report Type: Spontaneous
  Country: BR (occurrence: BR)
  Receive Date: 20201006
  Receipt Date: 20201112
  Transmission Date: 20210114
  Serious: Yes (Other)
  Sender: FDA-Public Use
  Company Number: BR-JNJFOC-20200910094

PATIENT

DRUGS (4)
  1. INTELENCE [Suspect]
     Active Substance: ETRAVIRINE
     Indication: FRIEDREICH^S ATAXIA
     Dosage: STRENGTH 100 MG,200 MG
     Route: 060
  2. INTELENCE [Suspect]
     Active Substance: ETRAVIRINE
     Indication: CONGENITAL OCULOMOTOR APRAXIA
  3. INTELENCE [Suspect]
     Active Substance: ETRAVIRINE
     Indication: HEREDITARY ATAXIA
  4. INSULIN [Concomitant]
     Active Substance: INSULIN NOS
     Indication: DIABETES MELLITUS

REACTIONS (6)
  - Product use in unapproved indication [Unknown]
  - COVID-19 [Unknown]
  - Urticaria [Unknown]
  - Incorrect route of product administration [Unknown]
  - Off label use [Unknown]
  - Therapeutic response unexpected [Unknown]
